FAERS Safety Report 21564562 (Version 1)
Quarter: 2022Q4

REPORT INFORMATION
  Report Type: Spontaneous
  Country: LB (occurrence: LB)
  Receive Date: 20221108
  Receipt Date: 20221108
  Transmission Date: 20230113
  Serious: Yes (Death, Hospitalization, Other)
  Sender: FDA-Public Use
  Company Number: LB-IPCA LABORATORIES LIMITED-IPC-2022-LB-001829

PATIENT

DRUGS (4)
  1. METFORMIN [Suspect]
     Active Substance: METFORMIN HYDROCHLORIDE
     Indication: Diabetes mellitus
     Dosage: 850 MILLIGRAM, BID
     Route: 065
  2. VILDAGLIPTIN-METFORMIN [Concomitant]
     Indication: Diabetes mellitus
     Dosage: 50 /1000 MG/DAY
     Route: 065
  3. IRBESARTAN [Concomitant]
     Active Substance: IRBESARTAN
     Indication: Hypertension
     Dosage: UNK
     Route: 065
  4. AMLODIPINE [Concomitant]
     Active Substance: AMLODIPINE BESYLATE
     Indication: Hypertension
     Dosage: UNK
     Route: 065

REACTIONS (9)
  - Lactic acidosis [Fatal]
  - Coma [Fatal]
  - Leukocytosis [Fatal]
  - Anaemia [Fatal]
  - Diarrhoea [Fatal]
  - Hypotension [Fatal]
  - Anuria [Fatal]
  - Pleural effusion [Fatal]
  - Hepatic cirrhosis [Fatal]
